FAERS Safety Report 7754675-X (Version None)
Quarter: 2011Q3

REPORT INFORMATION
  Report Type: 
  Country: None (occurrence: None)
  Receive Date: 20110915
  Receipt Date: 20110620
  Transmission Date: 20111222
  Serious: No
  Sender: FDA-Public Use
  Company Number: US-ALLERGAN-1108327US

PATIENT
  Age: 73 Year
  Sex: Female

DRUGS (4)
  1. BLINK [Concomitant]
     Indication: DRY EYE
  2. VISINE EYE DROPS [Concomitant]
     Indication: DRY EYE
     Dosage: UNK
  3. LUMIGAN [Suspect]
     Indication: GLAUCOMA
     Dosage: 2 GTT, QHS
     Route: 047
     Dates: start: 20110301
  4. SOOTHE [Concomitant]
     Indication: DRY EYE

REACTIONS (2)
  - EYE IRRITATION [None]
  - VISION BLURRED [None]
